FAERS Safety Report 4883187-6 (Version None)
Quarter: 2006Q1

REPORT INFORMATION
  Report Type: 
  Country: None (occurrence: None)
  Receive Date: 20060117
  Receipt Date: 20060117
  Transmission Date: 20060701
  Serious: No
  Sender: FDA-Public Use
  Company Number: None

PATIENT
  Age: 48 Year
  Sex: Female
  Weight: 70.3075 kg

DRUGS (2)
  1. ZICAM [Suspect]
     Indication: EYE SWELLING
     Dosage: ONE SQUIT UP NOSE
     Dates: start: 20051215, end: 20060115
  2. ZICAM [Suspect]
     Indication: NASAL CONGESTION
     Dosage: ONE SQUIT UP NOSE
     Dates: start: 20051215, end: 20060115

REACTIONS (1)
  - PAROSMIA [None]
